FAERS Safety Report 16293656 (Version 5)
Quarter: 2020Q1

REPORT INFORMATION
  Report Type: Spontaneous
  Country: CA (occurrence: CA)
  Receive Date: 20190509
  Receipt Date: 20200206
  Transmission Date: 20200409
  Serious: Yes (Other)
  Sender: FDA-Public Use
  Company Number: CA-PFIZER INC-2019017303

PATIENT
  Age: 60 Year
  Sex: Female
  Weight: 60 kg

DRUGS (3)
  1. TRAMACET [Concomitant]
     Active Substance: ACETAMINOPHEN\TRAMADOL
     Dosage: UNK, AS NEEDED
  2. XELJANZ [Suspect]
     Active Substance: TOFACITINIB CITRATE
     Indication: RHEUMATOID ARTHRITIS
     Dosage: 5 MG, 2X/DAY
     Route: 048
     Dates: start: 201708
  3. XELJANZ [Suspect]
     Active Substance: TOFACITINIB CITRATE
     Dosage: HALF OF 5MG BID
     Route: 048
     Dates: end: 202001

REACTIONS (7)
  - Scar [Unknown]
  - Intentional product use issue [Unknown]
  - Condition aggravated [Unknown]
  - Hyperaesthesia [Unknown]
  - Nasopharyngitis [Not Recovered/Not Resolved]
  - Maternal exposure during pregnancy [Unknown]
  - Impaired healing [Not Recovered/Not Resolved]
